FAERS Safety Report 4422113-0 (Version None)
Quarter: 2004Q3

REPORT INFORMATION
  Report Type: 
  Country: None (occurrence: None)
  Receive Date: 20040806
  Receipt Date: 20040726
  Transmission Date: 20050211
  Serious: Yes (Hospitalization)
  Sender: FDA-Public Use
  Company Number: HQWYE718920JUN03

PATIENT
  Age: 77 Year
  Sex: Female
  Weight: 66.77 kg

DRUGS (2)
  1. MYLOTARG [Suspect]
     Indication: ACUTE MYELOID LEUKAEMIA
     Dosage: 15 MG 1X PER 1 DAY, INTRAVENOUS
     Route: 042
     Dates: start: 20030521, end: 20030521
  2. MYLOTARG [Suspect]
     Indication: ACUTE MYELOID LEUKAEMIA
     Dosage: 15 MG 1X PER 1 DAY, INTRAVENOUS
     Route: 042
     Dates: start: 20030604, end: 20030604

REACTIONS (18)
  - BLOOD CREATININE INCREASED [None]
  - BLOOD UREA DECREASED [None]
  - CARDIOMEGALY [None]
  - CHILLS [None]
  - COUGH [None]
  - DYSPNOEA [None]
  - FALL [None]
  - FEBRILE NEUTROPENIA [None]
  - HAEMATOCRIT DECREASED [None]
  - HAEMOGLOBIN DECREASED [None]
  - HEAD INJURY [None]
  - INFUSION RELATED REACTION [None]
  - NEUTROPHIL PERCENTAGE DECREASED [None]
  - PERICARDIAL EFFUSION [None]
  - PLATELET COUNT DECREASED [None]
  - PLEURAL EFFUSION [None]
  - URINARY TRACT INFECTION [None]
  - WHEEZING [None]
